FAERS Safety Report 14009788 (Version 1)
Quarter: 2017Q3

REPORT INFORMATION
  Report Type: Report from Study
  Country: None (occurrence: FR)
  Receive Date: 20170925
  Receipt Date: 20170925
  Transmission Date: 20171128
  Serious: Yes (Death, Life-Threatening, Other)
  Sender: FDA-Public Use
  Company Number: FR-ABBVIE-17P-056-2111008-00

PATIENT
  Age: 64 Year
  Sex: Female

DRUGS (1)
  1. VENCLYXTO [Suspect]
     Active Substance: VENETOCLAX
     Indication: CHRONIC LYMPHOCYTIC LEUKAEMIA
     Route: 048
     Dates: start: 20170424, end: 20170523

REACTIONS (3)
  - Aplastic anaemia [Fatal]
  - Hepatocellular injury [Unknown]
  - Neutropenia [Unknown]

NARRATIVE: CASE EVENT DATE: 201704
